FAERS Safety Report 17330025 (Version 2)
Quarter: 2020Q1

REPORT INFORMATION
  Report Type: Other
  Country: GB (occurrence: GB)
  Receive Date: 20200128
  Receipt Date: 20200213
  Transmission Date: 20200409
  Serious: Yes (Hospitalization, Other)
  Sender: FDA-Public Use
  Company Number: GB-COVIS PHARMA B.V.-2020COV00041

PATIENT
  Age: 55 Year
  Sex: Male

DRUGS (23)
  1. OMEPRAZOLE MAGNESIUM. [Suspect]
     Active Substance: OMEPRAZOLE MAGNESIUM
     Indication: DYSPEPSIA
     Dosage: UNK
     Route: 048
     Dates: start: 20140116
  2. BOCOCIZUMAB [Suspect]
     Active Substance: BOCOCIZUMAB
     Dosage: UNK
     Route: 058
  3. FOLIC ACID. [Concomitant]
     Active Substance: FOLIC ACID
     Indication: ANAEMIA
     Dosage: UNK
     Dates: start: 20131211
  4. ASPIRIN. [Concomitant]
     Active Substance: ASPIRIN
     Indication: CARDIOVASCULAR DISORDER
     Dosage: UNK
     Dates: start: 20130708
  5. CARVEDILOL. [Suspect]
     Active Substance: CARVEDILOL
     Indication: ANGINA PECTORIS
     Dosage: 25 MG, 1X/DAY
     Dates: start: 20110616
  6. METHOTREXATE. [Concomitant]
     Active Substance: METHOTREXATE
     Indication: PSORIASIS
     Dosage: UNK
     Dates: start: 20150727
  7. FUROSEMIDE. [Suspect]
     Active Substance: FUROSEMIDE
     Indication: PULMONARY OEDEMA
     Dosage: 40 MG, 1X/DAY
     Dates: start: 20160402
  8. FUROSEMIDE. [Suspect]
     Active Substance: FUROSEMIDE
     Indication: LEFT VENTRICULAR DYSFUNCTION
  9. FUROSEMIDE. [Suspect]
     Active Substance: FUROSEMIDE
     Indication: LUNG DISORDER
  10. ATORVASTATIN [Concomitant]
     Active Substance: ATORVASTATIN
     Indication: CARDIOVASCULAR DISORDER
     Dosage: UNK
     Dates: start: 20130708
  11. GLYCERYL TRINITRATE [Concomitant]
     Active Substance: NITROGLYCERIN
     Indication: CARDIOVASCULAR DISORDER
     Dosage: UNK
     Dates: start: 20130902
  12. LOTRIDERM [Concomitant]
     Active Substance: BETAMETHASONE DIPROPIONATE\CLOTRIMAZOLE
     Indication: PSORIASIS
     Dosage: UNK
     Dates: start: 20150626
  13. SACUBITRIL+VALSARTAN [Concomitant]
     Indication: LEFT VENTRICULAR DYSFUNCTION
     Dosage: UNK
     Dates: start: 20160601
  14. RAMIPRIL. [Suspect]
     Active Substance: RAMIPRIL
     Indication: CARDIAC FAILURE
     Dosage: 1.25 MG, 1X/DAY
     Route: 048
     Dates: start: 20130813, end: 20160629
  15. BOCOCIZUMAB [Suspect]
     Active Substance: BOCOCIZUMAB
     Indication: CARDIOVASCULAR DISORDER
     Dosage: 150 MG, 2X/MONTH
     Route: 058
     Dates: start: 20150908, end: 20161101
  16. KAPAKE [Concomitant]
     Active Substance: ACETAMINOPHEN\CODEINE PHOSPHATE
     Indication: PAIN IN EXTREMITY
     Dosage: UNK
     Dates: start: 20110616
  17. QUETIAPINE FUMARATE. [Suspect]
     Active Substance: QUETIAPINE FUMARATE
     Indication: DEPRESSION
     Dosage: UNK
     Route: 048
     Dates: start: 20150826
  18. SERTRALINE HYDROCHLORIDE. [Concomitant]
     Active Substance: SERTRALINE HYDROCHLORIDE
     Indication: DEPRESSION
     Dosage: UNK
     Dates: start: 20110816
  19. PARACETAMOL [Concomitant]
     Active Substance: ACETAMINOPHEN
     Indication: PAIN IN EXTREMITY
     Dosage: UNK
     Dates: start: 20110616
  20. IVABRADINE HYDROCHLORIDE [Suspect]
     Active Substance: IVABRADINE HYDROCHLORIDE
     Indication: ANGINA PECTORIS
     Dosage: 5 MG, 1X/DAY
  21. ISOSORBIDE MONONITRATE. [Suspect]
     Active Substance: ISOSORBIDE MONONITRATE
     Indication: ANGINA PECTORIS
     Dosage: 10 MG, 1X/DAY
     Route: 048
     Dates: start: 20160205
  22. IVABRADINE HYDROCHLORIDE [Suspect]
     Active Substance: IVABRADINE HYDROCHLORIDE
     Dosage: 5 MG, 2X/DAY
     Dates: start: 20150211
  23. CODEINE PHOSPHATE [Concomitant]
     Active Substance: CODEINE PHOSPHATE

REACTIONS (10)
  - Fluid retention [Unknown]
  - Pulmonary oedema [Unknown]
  - Presyncope [Unknown]
  - Oedema peripheral [Not Recovered/Not Resolved]
  - Psoriasis [Unknown]
  - Anaemia [Unknown]
  - Hypotension [Recovered/Resolved]
  - Ventricular dysfunction [Unknown]
  - Contusion [Recovered/Resolved]
  - Angina pectoris [Unknown]

NARRATIVE: CASE EVENT DATE: 20151021
